FAERS Safety Report 18232376 (Version 1)
Quarter: 2020Q3

REPORT INFORMATION
  Report Type: Spontaneous
  Country: FR (occurrence: FR)
  Receive Date: 20200904
  Receipt Date: 20200904
  Transmission Date: 20201103
  Serious: Yes (Hospitalization)
  Sender: FDA-Public Use
  Company Number: FR-TEVA-2020-FR-1822072

PATIENT
  Age: 85 Year
  Sex: Male
  Weight: 70 kg

DRUGS (14)
  1. RIFADINE 300 MG, GELULE [Suspect]
     Active Substance: RIFAMPIN
     Indication: BACTERIAL PROSTATITIS
     Dosage: 2 DOSAGE FORMS
     Route: 048
     Dates: start: 20200603, end: 20200606
  2. SPASFON [Concomitant]
  3. IOMERON [Suspect]
     Active Substance: IOMEPROL
     Indication: COMPUTERISED TOMOGRAM
     Dosage: 1 DOSAGE FORMS
     Route: 042
     Dates: start: 20200526, end: 20200526
  4. VANCOMYCINE MYLAN [Suspect]
     Active Substance: VANCOMYCIN
     Indication: BACTERIAL PROSTATITIS
     Dosage: 2 GM
     Route: 041
     Dates: start: 20200529, end: 20200621
  5. PARACETAMOL [Concomitant]
     Active Substance: ACETAMINOPHEN
  6. MOVICOL [Concomitant]
     Active Substance: POLYETHYLENE GLYCOL 3350\POTASSIUM CHLORIDE\SODIUM BICARBONATE\SODIUM CHLORIDE
  7. LERCAN [Concomitant]
     Active Substance: LERCANIDIPINE
  8. FLECAINE [Concomitant]
     Active Substance: FLECAINIDE
  9. DUTASTERIDE. [Concomitant]
     Active Substance: DUTASTERIDE
  10. CACIT VITAMINE D3 [Concomitant]
     Active Substance: CALCIUM CARBONATE\CHOLECALCIFEROL
  11. TAMSULOSINE [Concomitant]
     Active Substance: TAMSULOSIN HYDROCHLORIDE
  12. CEFTRIAXONE PANPHARMA 2 G, POUDRE POUR SOLUTION POUR PERFUSION [Suspect]
     Active Substance: CEFTRIAXONE
     Indication: BACTERIAL PROSTATITIS
     Dosage: 1 DOSAGE FORMS
     Route: 041
     Dates: start: 20200526, end: 20200528
  13. OFLOXACINE [Suspect]
     Active Substance: OFLOXACIN
     Indication: BACTERIAL PROSTATITIS
     Dosage: 400 MG
     Route: 048
     Dates: start: 20200519, end: 20200525
  14. LEVOTHYROX [Concomitant]
     Active Substance: LEVOTHYROXINE

REACTIONS (1)
  - Drug reaction with eosinophilia and systemic symptoms [Recovering/Resolving]

NARRATIVE: CASE EVENT DATE: 20200626
